FAERS Safety Report 8834461 (Version 1)
Quarter: 2012Q4

REPORT INFORMATION
  Report Type: Spontaneous
  Country: US (occurrence: None)
  Receive Date: 20121010
  Receipt Date: 20121010
  Transmission Date: 20130627
  Serious: Yes (Other)
  Sender: FDA-Public Use
  Company Number: None

PATIENT
  Age: 20 Year
  Sex: Female
  Weight: 61.24 kg

DRUGS (1)
  1. MIRENA IUD [Suspect]
     Indication: BIRTH CONTROL
     Dates: start: 20071101, end: 20121009

REACTIONS (4)
  - Device dislocation [None]
  - Uterine perforation [None]
  - Genital disorder female [None]
  - Infertility female [None]
